FAERS Safety Report 6864351-3 (Version None)
Quarter: 2010Q3

REPORT INFORMATION
  Report Type: 
  Country: None (occurrence: None)
  Receive Date: 20100721
  Receipt Date: 20080321
  Transmission Date: 20110219
  Serious: No
  Sender: FDA-Public Use
  Company Number: US-PFIZER INC-2008026779

PATIENT
  Sex: Female
  Weight: 63.6 kg

DRUGS (4)
  1. CHANTIX [Suspect]
     Indication: SMOKING CESSATION THERAPY
     Dates: start: 20080312
  2. PRENATAL VITAMINS [Concomitant]
  3. PROMETRIUM [Concomitant]
  4. HUMALOG [Concomitant]

REACTIONS (4)
  - DRUG DOSE OMISSION [None]
  - INFLUENZA [None]
  - MALAISE [None]
  - NAUSEA [None]
